FAERS Safety Report 24767869 (Version 1)
Quarter: 2024Q4

REPORT INFORMATION
  Report Type: Spontaneous
  Country: US (occurrence: None)
  Receive Date: 20241222
  Receipt Date: 20241222
  Transmission Date: 20250114
  Serious: Yes (Other)
  Sender: Public
  Company Number: None

PATIENT
  Age: 36 Year
  Sex: Male
  Weight: 82.8 kg

DRUGS (19)
  1. TRIAZOLAM [Suspect]
     Active Substance: TRIAZOLAM
     Indication: Sleep disorder
     Dosage: OTHER QUANTITY : 2 TABLET(S);?FREQUENCY : AT BEDTIME;?
     Route: 048
     Dates: start: 20190724, end: 20241220
  2. VRAYLAR [Concomitant]
     Active Substance: CARIPRAZINE
  3. MONTELUKAST [Concomitant]
     Active Substance: MONTELUKAST SODIUM
  4. LAMOTRIGINE [Concomitant]
     Active Substance: LAMOTRIGINE
  5. PREGABALIN [Concomitant]
     Active Substance: PREGABALIN
  6. FLUOXETINE [Concomitant]
     Active Substance: FLUOXETINE HYDROCHLORIDE
  7. ESTRADIOL VALERATE [Concomitant]
     Active Substance: ESTRADIOL VALERATE
  8. METHYLPHENIDATE [Concomitant]
     Active Substance: METHYLPHENIDATE
  9. VYEPTI [Concomitant]
     Active Substance: EPTINEZUMAB-JJMR
  10. MEDROXYPROGESTERONE [Concomitant]
     Active Substance: MEDROXYPROGESTERONE
  11. VITAMIN D3 [Concomitant]
     Active Substance: CHOLECALCIFEROL
  12. Apretude Sus [Concomitant]
  13. M Methenamine Hippurate [Concomitant]
  14. TACROLIMUS [Concomitant]
     Active Substance: TACROLIMUS
  15. UAD Mometasone Furoate Ointment 0.1% [Concomitant]
  16. UAD [Concomitant]
  17. DEVICE [Concomitant]
     Active Substance: DEVICE
  18. Fiber-Cap [Concomitant]
  19. VITAMIN E [Concomitant]
     Active Substance: .ALPHA.-TOCOPHEROL

REACTIONS (2)
  - Therapy interrupted [None]
  - Withdrawal syndrome [None]

NARRATIVE: CASE EVENT DATE: 20241220
